FAERS Safety Report 12704194 (Version 1)
Quarter: 2016Q3

REPORT INFORMATION
  Report Type: Spontaneous
  Country: SE (occurrence: SE)
  Receive Date: 20160831
  Receipt Date: 20160831
  Transmission Date: 20161109
  Serious: Yes (Life-Threatening, Hospitalization)
  Sender: FDA-Public Use
  Company Number: SE-MYLANLABS-2016M1036626

PATIENT

DRUGS (1)
  1. OLANZAPINE. [Suspect]
     Active Substance: OLANZAPINE
     Indication: SCHIZOPHRENIA
     Dosage: 405MG EVERY FOURTH WEEK
     Route: 065

REACTIONS (2)
  - Post-injection delirium sedation syndrome [Recovered/Resolved]
  - Overdose [Recovered/Resolved]
